FAERS Safety Report 9716893 (Version 1)
Quarter: 2013Q4

REPORT INFORMATION
  Report Type: Spontaneous
  Country: US (occurrence: US)
  Receive Date: 20131127
  Receipt Date: 20131127
  Transmission Date: 20140711
  Serious: No
  Sender: FDA-Public Use
  Company Number: US-GILEAD-2009-0019896

PATIENT
  Age: 76 Year
  Sex: Female
  Weight: 58.97 kg

DRUGS (12)
  1. LETAIRIS [Suspect]
     Indication: PULMONARY ARTERIAL HYPERTENSION
     Route: 048
     Dates: start: 20081203
  2. LETAIRIS [Suspect]
     Route: 048
  3. ALBUTEROL [Concomitant]
  4. ADVAIR [Concomitant]
  5. OXYGEN [Concomitant]
  6. SYNTHROID [Concomitant]
  7. PREDNISONE [Concomitant]
  8. XANAX [Concomitant]
  9. LOVASTATIN [Concomitant]
  10. BONIVA [Concomitant]
  11. CALCIUM [Concomitant]
  12. CENTRUM [Concomitant]

REACTIONS (2)
  - Drug ineffective [Unknown]
  - Dyspnoea [Unknown]
